FAERS Safety Report 4445291-6 (Version None)
Quarter: 2004Q3

REPORT INFORMATION
  Report Type: 
  Country: None (occurrence: None)
  Receive Date: 20040907
  Receipt Date: 20040825
  Transmission Date: 20050211
  Serious: Yes (Disabling)
  Sender: FDA-Public Use
  Company Number: 04P-056-0268297-00

PATIENT
  Age: 42 Year
  Sex: Male
  Weight: 108 kg

DRUGS (16)
  1. TRICOR [Suspect]
     Indication: TYPE IIA HYPERLIPIDAEMIA
     Dosage: 160 MG, 1 IN 1 D, PER ORAL
     Route: 048
     Dates: start: 20040715, end: 20040101
  2. NITROGLYCERIN [Concomitant]
  3. CLOPIDOGREL BISULFATE [Concomitant]
  4. ISOSORBIDE DINITRATE [Concomitant]
  5. MORPHINE [Concomitant]
  6. MOLSIDOMINE [Concomitant]
  7. CLONAZEPAM [Concomitant]
  8. ACETYLSALICYLATE LYSINE [Concomitant]
  9. DILTIAZEM HYDROCHLORIDE [Concomitant]
  10. MORPHINE SULFATE [Concomitant]
  11. BISOPROLOL FUMARATE [Concomitant]
  12. AMITRIPTYLINE HYDROCHLORIDE [Concomitant]
  13. ZOLPIDEM TARTRATE [Concomitant]
  14. BROMAZEPAM [Concomitant]
  15. CALCIFEDIOL [Concomitant]
  16. DIACEREIN [Concomitant]

REACTIONS (6)
  - BLOOD CREATINE PHOSPHOKINASE INCREASED [None]
  - FIBROMYALGIA [None]
  - MOVEMENT DISORDER [None]
  - MYALGIA [None]
  - PAIN IN EXTREMITY [None]
  - SPINAL CORD COMPRESSION [None]
